FAERS Safety Report 7764962-7 (Version None)
Quarter: 2011Q3

REPORT INFORMATION
  Report Type: 
  Country: None (occurrence: None)
  Receive Date: 20110916
  Receipt Date: 20110908
  Transmission Date: 20111222
  Serious: Yes (Hospitalization, Other)
  Sender: FDA-Public Use
  Company Number: 2011SP025635

PATIENT
  Age: 23 Year
  Sex: Female
  Weight: 113.3993 kg

DRUGS (1)
  1. NUVARING [Suspect]
     Indication: CONTRACEPTION
     Dates: end: 20090601

REACTIONS (13)
  - MIGRAINE [None]
  - PNEUMONIA [None]
  - ANXIETY [None]
  - JAUNDICE [None]
  - HYPERCOAGULATION [None]
  - BODY TEMPERATURE INCREASED [None]
  - MUSCLE SPASMS [None]
  - DEPRESSION [None]
  - HIDRADENITIS [None]
  - PULMONARY EMBOLISM [None]
  - ADENOTONSILLECTOMY [None]
  - DEEP VEIN THROMBOSIS [None]
  - MAMMOPLASTY [None]
